FAERS Safety Report 15750018 (Version 1)
Quarter: 2018Q4

REPORT INFORMATION
  Report Type: Other
  Country: NL (occurrence: NL)
  Receive Date: 20181221
  Receipt Date: 20181221
  Transmission Date: 20190205
  Serious: Yes (Other)
  Sender: FDA-Public Use
  Company Number: NL-APOTEX-2018AP027791

PATIENT
  Age: 72 Year
  Sex: Male

DRUGS (2)
  1. DICLOFENAC SODIUM. [Suspect]
     Active Substance: DICLOFENAC SODIUM
     Indication: SYSTEMIC MASTOCYTOSIS
     Dosage: UNK
     Route: 065
  2. IBUPROFEN. [Suspect]
     Active Substance: IBUPROFEN
     Indication: SYSTEMIC MASTOCYTOSIS
     Dosage: 245 DF, UNK
     Route: 065

REACTIONS (3)
  - Pruritus generalised [Unknown]
  - Hypersensitivity [Unknown]
  - Vision blurred [Unknown]
